FAERS Safety Report 8220984-3 (Version None)
Quarter: 2012Q1

REPORT INFORMATION
  Report Type: 
  Country: None (occurrence: None)
  Receive Date: 20120320
  Receipt Date: 20120306
  Transmission Date: 20120608
  Serious: Yes (Hospitalization)
  Sender: FDA-Public Use
  Company Number: IL-MYLANLABS-2012S1005222

PATIENT
  Age: 30 Year
  Sex: Male

DRUGS (3)
  1. SIMVASTATIN [Concomitant]
     Route: 065
  2. ATENOLOL [Concomitant]
     Route: 065
  3. VALPROIC ACID [Suspect]
     Indication: CONVULSION
     Route: 065

REACTIONS (1)
  - PLEURAL EFFUSION [None]
